FAERS Safety Report 9631485 (Version 1)
Quarter: 2013Q4

REPORT INFORMATION
  Report Type: Spontaneous
  Country: US (occurrence: US)
  Receive Date: 20131018
  Receipt Date: 20131018
  Transmission Date: 20140711
  Serious: No
  Sender: FDA-Public Use
  Company Number: US-PFIZER INC-2013298699

PATIENT
  Age: 53 Year
  Sex: Male
  Weight: 95.24 kg

DRUGS (4)
  1. IBUPROFEN [Suspect]
     Indication: PAIN
     Dosage: 800 MG, 3X/DAY
  2. GABAPENTIN [Suspect]
     Indication: NEUROPATHY PERIPHERAL
     Dosage: 300 MG, 3X/DAY
     Route: 048
     Dates: start: 201310, end: 201310
  3. TRAMADOL HCL [Suspect]
     Indication: PAIN
     Dosage: 100 MG, 3X/DAY
     Route: 048
  4. XANAX [Concomitant]
     Indication: ANXIETY
     Dosage: 3 MG, 1X/DAY

REACTIONS (4)
  - Overdose [Unknown]
  - Feeling drunk [Unknown]
  - Euphoric mood [Unknown]
  - Insomnia [Recovered/Resolved]
